FAERS Safety Report 8901139 (Version 1)
Quarter: 2012Q4

REPORT INFORMATION
  Report Type: 
  Country: US (occurrence: US)
  Receive Date: 20121109
  Receipt Date: 20121109
  Transmission Date: 20130627
  Serious: No
  Sender: FDA-Public Use
  Company Number: US-PFIZER INC-2012277808

PATIENT
  Age: 65 Year
  Sex: Male
  Weight: 113 kg

DRUGS (5)
  1. ZOLOFT [Suspect]
     Indication: ANXIETY
     Dosage: 100 mg, 1x/day
     Route: 048
     Dates: start: 201204, end: 2012
  2. ZOLOFT [Suspect]
     Indication: DEPRESSION
     Dosage: 50 mg, 1x/day
     Route: 048
     Dates: start: 2012, end: 2012
  3. ZOLOFT [Suspect]
     Dosage: UNK
     Route: 048
     Dates: start: 2012
  4. COZAAR [Concomitant]
     Indication: BLOOD PRESSURE HIGH
     Dosage: 100 mg, 1x/day
  5. LIPITOR [Concomitant]
     Indication: HIGH CHOLESTEROL
     Dosage: UNK

REACTIONS (2)
  - Temporomandibular joint syndrome [Not Recovered/Not Resolved]
  - Headache [Not Recovered/Not Resolved]
